FAERS Safety Report 6071275-0 (Version None)
Quarter: 2009Q1

REPORT INFORMATION
  Report Type: 
  Country: None (occurrence: None)
  Receive Date: 20090209
  Receipt Date: 20090130
  Transmission Date: 20090719
  Serious: Yes (Death)
  Sender: FDA-Public Use
  Company Number: FR-ABBOTT-09P-056-0500772-00

PATIENT
  Age: 74 Year
  Sex: Female

DRUGS (1)
  1. VALPROIC ACID [Suspect]
     Indication: DRUG USE FOR UNKNOWN INDICATION
     Dosage: NOT REPORTED

REACTIONS (4)
  - ACIDOSIS [None]
  - ACUTE PULMONARY OEDEMA [None]
  - FLUID RETENTION [None]
  - HYPONATRAEMIA [None]
